FAERS Safety Report 8152841-5 (Version None)
Quarter: 2012Q1

REPORT INFORMATION
  Report Type: 
  Country: None (occurrence: None)
  Receive Date: 20120221
  Receipt Date: 20120209
  Transmission Date: 20120608
  Serious: Yes (Hospitalization)
  Sender: FDA-Public Use
  Company Number: US-JNJFOC-20120206084

PATIENT
  Sex: Female
  Weight: 53.07 kg

DRUGS (3)
  1. REMICADE [Suspect]
     Route: 042
     Dates: start: 20120101
  2. REMICADE [Suspect]
     Indication: PSORIATIC ARTHROPATHY
     Dosage: STARTED FEW YEARS AGO
     Route: 042
  3. HEART MEDICATION (NOS) [Concomitant]
     Route: 065

REACTIONS (3)
  - COUGH [None]
  - CARDIAC FAILURE CONGESTIVE [None]
  - PNEUMONIA [None]
